FAERS Safety Report 6609619-0 (Version None)
Quarter: 2010Q1

REPORT INFORMATION
  Report Type: 
  Country: None (occurrence: None)
  Receive Date: 20100302
  Receipt Date: 20100217
  Transmission Date: 20100710
  Serious: Yes (Other)
  Sender: FDA-Public Use
  Company Number: JP-PFIZER INC-2009311959

PATIENT
  Age: 68 Year
  Sex: Female

DRUGS (3)
  1. GABAPENTIN [Suspect]
     Indication: NEURALGIA
     Dosage: 200 MG, UNK
  2. OXYCONTIN [Suspect]
     Indication: PAIN
     Dosage: 20 MG, 3X/DAY
     Route: 048
  3. MORPHINE HYDROCHLORIDE [Suspect]
     Indication: PAIN
     Dosage: 10 MG, AS NEEDED
     Route: 048

REACTIONS (6)
  - DEPRESSED LEVEL OF CONSCIOUSNESS [None]
  - DIPLOPIA [None]
  - DISORIENTATION [None]
  - DIZZINESS [None]
  - RESTLESSNESS [None]
  - SOMNOLENCE [None]
